FAERS Safety Report 8102828-3 (Version None)
Quarter: 2011Q4

REPORT INFORMATION
  Report Type: 
  Country: None (occurrence: None)
  Receive Date: 20111222
  Receipt Date: 20111014
  Transmission Date: 20120403
  Serious: Yes (Hospitalization)
  Sender: FDA-Public Use
  Company Number: UTC-011203

PATIENT
  Age: 75 Year
  Sex: Female
  Weight: 67.13 kg

DRUGS (1)
  1. TYVASO [Suspect]
     Indication: PULMONARY ARTERIAL HYPERTENSION
     Dosage: 120 MCG (30 MCG, 4 IN 1 D), INHALATION
     Route: 055
     Dates: start: 20110923

REACTIONS (3)
  - GAIT DISTURBANCE [None]
  - FALL [None]
  - FACIAL BONES FRACTURE [None]
